FAERS Safety Report 11581834 (Version 1)
Quarter: 2015Q4

REPORT INFORMATION
  Report Type: Spontaneous
  Country: US (occurrence: US)
  Receive Date: 20151001
  Receipt Date: 20151001
  Transmission Date: 20160304
  Serious: No
  Sender: FDA-Public Use
  Company Number: US-ROCHE-707611

PATIENT
  Sex: Female
  Weight: 90.7 kg

DRUGS (3)
  1. ENALAPRIL [Concomitant]
     Active Substance: ENALAPRIL
     Route: 065
  2. PEGASYS [Suspect]
     Active Substance: PEGINTERFERON ALFA-2A
     Indication: HEPATITIS C
     Route: 058
  3. RIBAVIRIN. [Concomitant]
     Active Substance: RIBAVIRIN
     Route: 065

REACTIONS (3)
  - Medication error [Unknown]
  - Needle issue [Unknown]
  - No adverse event [Unknown]
